FAERS Safety Report 25258051 (Version 2)
Quarter: 2025Q2

REPORT INFORMATION
  Report Type: Report from Study
  Country: US (occurrence: US)
  Receive Date: 20250501
  Receipt Date: 20250602
  Transmission Date: 20250717
  Serious: Yes (Hospitalization, Other)
  Sender: ABBVIE
  Company Number: US-ABBVIE-6255137

PATIENT
  Age: 80 Year
  Sex: Female
  Weight: 64.41 kg

DRUGS (3)
  1. SKYRIZI [Suspect]
     Active Substance: RISANKIZUMAB-RZAA
     Indication: Psoriasis
     Route: 058
     Dates: start: 20201215
  2. Bumetanide (Bumex) [Concomitant]
     Indication: Cardiac disorder
  3. Spironolactone (Aldactone) [Concomitant]
     Indication: Diuretic therapy

REACTIONS (5)
  - Chronic kidney disease [Recovering/Resolving]
  - Abdominal pain upper [Recovered/Resolved]
  - Diverticulitis [Recovered/Resolved]
  - Abdominal pain upper [Recovered/Resolved]
  - Diverticulitis [Recovered/Resolved]

NARRATIVE: CASE EVENT DATE: 20221001
